FAERS Safety Report 8542574-5 (Version None)
Quarter: 2012Q3

REPORT INFORMATION
  Report Type: 
  Country: None (occurrence: None)
  Receive Date: 20120726
  Receipt Date: 20120723
  Transmission Date: 20120928
  Serious: Yes (Other)
  Sender: FDA-Public Use
  Company Number: US-ABBOTT-12P-163-0959600-00

PATIENT
  Sex: Male
  Weight: 108.96 kg

DRUGS (8)
  1. ANDROGEL [Suspect]
     Indication: BLOOD TESTOSTERONE DECREASED
     Dosage: 17 PUMP ACTUATIONS PER DAY
     Dates: start: 20050101, end: 20120401
  2. AMLODIPINE [Concomitant]
     Indication: HYPERTENSION
  3. ANDROGEL [Suspect]
     Indication: BLOOD TESTOSTERONE DECREASED
     Dosage: 11 PUMP ACTUATIONS PER DAY
     Dates: start: 20120401
  4. LOSARTAN POTASSIUM [Concomitant]
     Indication: HYPERTENSION
  5. HYDROCHLOROTHIAZIDE [Concomitant]
     Indication: HYPERTENSION
  6. NIASPAN [Concomitant]
     Indication: BLOOD CHOLESTEROL INCREASED
  7. ATORVASTATIN [Concomitant]
     Indication: BLOOD CHOLESTEROL INCREASED
  8. THYROID TAB [Concomitant]
     Indication: HYPOTHYROIDISM

REACTIONS (5)
  - ROAD TRAFFIC ACCIDENT [None]
  - TENDON RUPTURE [None]
  - JOINT INJURY [None]
  - MUSCULOSKELETAL PAIN [None]
  - EXOSTOSIS [None]
